FAERS Safety Report 9047186 (Version 1)
Quarter: 2013Q1

REPORT INFORMATION
  Report Type: Report from Study
  Country: US (occurrence: US)
  Receive Date: 20130130
  Receipt Date: 20130130
  Transmission Date: 20140127
  Serious: No
  Sender: FDA-Public Use
  Company Number: US-ABBOTT-12P-163-0975729-00

PATIENT
  Age: 46 None
  Sex: Female
  Weight: 54.48 kg

DRUGS (5)
  1. HUMIRA [Suspect]
     Route: 058
     Dates: start: 2008
  2. ASACOL [Concomitant]
     Indication: CROHN^S DISEASE
  3. FLAGYL [Concomitant]
     Indication: CROHN^S DISEASE
  4. SEASONIQUE [Concomitant]
     Indication: HORMONE REPLACEMENT THERAPY
  5. CLARITIN [Concomitant]
     Indication: HYPERSENSITIVITY

REACTIONS (3)
  - Poor quality drug administered [Not Recovered/Not Resolved]
  - Diarrhoea [Not Recovered/Not Resolved]
  - Dyspepsia [Not Recovered/Not Resolved]
